FAERS Safety Report 11650675 (Version 2)
Quarter: 2015Q4

REPORT INFORMATION
  Report Type: Other
  Country: IT (occurrence: IT)
  Receive Date: 20151021
  Receipt Date: 20151211
  Transmission Date: 20160304
  Serious: Yes (Hospitalization)
  Sender: FDA-Public Use
  Company Number: IT-MYLANLABS-2015M1034977

PATIENT

DRUGS (2)
  1. CAPECITABINA MYLAN [Suspect]
     Active Substance: CAPECITABINE
     Indication: COLON NEOPLASM
     Dosage: 3150 MG, QD
     Route: 048
     Dates: start: 20150806, end: 20150819
  2. OXALIPLATINO ACCORD [Suspect]
     Active Substance: OXALIPLATIN
     Indication: COLON NEOPLASM
     Dosage: 205 MG, CYCLE
     Route: 042
     Dates: start: 20150806, end: 20150806

REACTIONS (5)
  - Gene mutation [Unknown]
  - Inflammatory marker increased [Unknown]
  - Diarrhoea [Unknown]
  - Pyrexia [Unknown]
  - Stomatitis [Unknown]

NARRATIVE: CASE EVENT DATE: 2015
